FAERS Safety Report 24950207 (Version 1)
Quarter: 2025Q1

REPORT INFORMATION
  Report Type: Report from Study
  Country: ES (occurrence: ES)
  Receive Date: 20250210
  Receipt Date: 20250210
  Transmission Date: 20250409
  Serious: Yes (Other)
  Sender: TEVA
  Company Number: ES-TEVA-VS-3294689

PATIENT
  Age: 84 Year
  Sex: Female

DRUGS (8)
  1. TERIPARATIDE [Suspect]
     Active Substance: TERIPARATIDE
     Indication: Osteoporosis
     Route: 065
     Dates: start: 20240301
  2. RIVASTIGMINE [Concomitant]
     Active Substance: RIVASTIGMINE
     Indication: Dementia Alzheimer^s type
     Route: 065
     Dates: start: 20240207
  3. FEBUXOSTAT [Concomitant]
     Active Substance: FEBUXOSTAT
     Indication: Hyperuricaemia
     Route: 065
     Dates: start: 202501
  4. ASPIRIN [Concomitant]
     Active Substance: ASPIRIN
     Indication: Platelet aggregation abnormal
     Dosage: START DATE: LONG TIME AGO, DOSAGE: 1/24H
     Route: 065
  5. SIMVASTATIN [Concomitant]
     Active Substance: SIMVASTATIN
     Indication: Dyslipidaemia
     Dosage: START DATE: LONG TIME AGO, DOSAGE: 1/24H
     Route: 065
  6. RAMIPRIL [Concomitant]
     Active Substance: RAMIPRIL
     Indication: Hypertension
     Dosage: START DATE: LONG TIME AGO, DOSAGE: 1/24H
     Route: 065
  7. TRYPTIZOL [Concomitant]
     Active Substance: AMITRIPTYLINE HYDROCHLORIDE
     Indication: Anxiety
     Dosage: DOSAGE: 1/24H, 10, START DATE: LONG TIME AGO
     Route: 065
  8. DIAZEPAM [Concomitant]
     Active Substance: DIAZEPAM
     Indication: Anxiety
     Dosage: DOSAGE: 0-0-1, START DATE: LONG TIME AGO
     Route: 065

REACTIONS (3)
  - Fatigue [Not Recovered/Not Resolved]
  - Blood uric acid increased [Not Recovered/Not Resolved]
  - Constipation [Not Recovered/Not Resolved]

NARRATIVE: CASE EVENT DATE: 20240301
